FAERS Safety Report 4511109-6 (Version None)
Quarter: 2004Q4

REPORT INFORMATION
  Report Type: 
  Country: None (occurrence: None)
  Receive Date: 20041012
  Receipt Date: 20040910
  Transmission Date: 20050328
  Serious: No
  Sender: FDA-Public Use
  Company Number: PHEH2004US08826

PATIENT
  Sex: Female

DRUGS (1)
  1. ELIDEL [Suspect]
     Indication: ROSACEA
     Dosage: BID
     Dates: start: 20030801

REACTIONS (3)
  - LARYNGITIS [None]
  - LYMPHADENOPATHY [None]
  - PHARYNGOLARYNGEAL PAIN [None]
